FAERS Safety Report 17103581 (Version 1)
Quarter: 2019Q4

REPORT INFORMATION
  Report Type: Spontaneous
  Country: US (occurrence: US)
  Receive Date: 20191202
  Receipt Date: 20191202
  Transmission Date: 20200122
  Serious: Yes (Hospitalization)
  Sender: FDA-Public Use
  Company Number: None

PATIENT
  Age: 84 Year
  Sex: Female
  Weight: 57.2 kg

DRUGS (10)
  1. FUROSEMIDE 40MG DAILY [Concomitant]
  2. DABIGATRAN [Suspect]
     Active Substance: DABIGATRAN
     Indication: ATRIAL FIBRILLATION
     Route: 048
     Dates: start: 20141102
  3. DILTIAZEM 90MG Q 8 HOURS [Concomitant]
  4. MAGNESIUM OXIDE 400MG DAILY [Concomitant]
  5. BUSPIRONE 5MG BID [Concomitant]
  6. VORTIOXETINE 10MG DAILY [Concomitant]
  7. FERROUS SULFATE 325MG BID [Concomitant]
  8. DULOXETINE 60MG DAILY [Concomitant]
  9. LORATADINE 10MG DAILY [Concomitant]
  10. OMEPRAZOLE 20MG DAILY [Concomitant]

REACTIONS (1)
  - Gastrointestinal haemorrhage [None]

NARRATIVE: CASE EVENT DATE: 20160625
